FAERS Safety Report 22654553 (Version 1)
Quarter: 2023Q2

REPORT INFORMATION
  Report Type: Spontaneous
  Country: FR (occurrence: FR)
  Receive Date: 20230629
  Receipt Date: 20230629
  Transmission Date: 20230721
  Serious: Yes (Hospitalization)
  Sender: FDA-Public Use
  Company Number: None

PATIENT
  Age: 6 Year
  Sex: Female
  Weight: 13 kg

DRUGS (17)
  1. DUPIXENT [Suspect]
     Active Substance: DUPILUMAB
     Indication: Epidermolysis bullosa
     Dosage: 300 MG, QM
     Route: 058
     Dates: start: 20210616
  2. CHOLECALCIFEROL [Concomitant]
     Active Substance: CHOLECALCIFEROL
     Dosage: UNK, UVEDOSE 100 000 UI ORAL SOLUTION IN AMPOULE
  3. TITANOREINE [CHONDRUS CRISPUS;TITANIUM DIOXIDE;ZINC OXIDE] [Concomitant]
     Dosage: UNK
  4. FOLIC ACID [Concomitant]
     Active Substance: FOLIC ACID
     Dosage: UNK
  5. NEXIUM [Concomitant]
     Active Substance: ESOMEPRAZOLE MAGNESIUM
     Dosage: UNK, GASTRO-RESISTANT GRANULES FOR ORAL SUSPENSION IN SACHET-DOSE
  6. HYALURONATE SODIUM [Concomitant]
     Active Substance: HYALURONATE SODIUM
     Dosage: UNK
  7. ORAMORPH SR SUSTAINED RELEASE [Concomitant]
     Active Substance: MORPHINE SULFATE
     Dosage: UNK
  8. BLACK BIRCH [Concomitant]
     Active Substance: BETULA LENTA POLLEN
     Dosage: UNK, BIRCH BARK REFINED DRY EXTRACT 10%
  9. SILVER SULFADIAZINE [Concomitant]
     Active Substance: SILVER SULFADIAZINE
     Dosage: UNK
  10. XYLOGEL [XYLOMETAZOLINE HYDROCHLORIDE] [Concomitant]
     Dosage: UNK
  11. SODIUM FEREDETATE [Concomitant]
     Active Substance: SODIUM FEREDETATE
     Dosage: UNK
  12. SODIUM CITRATE\SODIUM LAURYL SULFOACETATE\SORBITOL [Concomitant]
     Active Substance: SODIUM CITRATE\SODIUM LAURYL SULFOACETATE\SORBITOL
     Dosage: UNK
  13. RETINOL [Concomitant]
     Active Substance: RETINOL
     Dosage: 25,000 U.I. PER 100 G, OPHTHALMIC OINTMENT
     Route: 047
  14. DOLIPRANE [Concomitant]
     Active Substance: ACETAMINOPHEN
     Dosage: UNK, 2.4 PER CENT SUGAR-FREE, LIQUID MALTITOL SORBITOL DRINKABLE SUSPENSION`
  15. POLYETHYLENE GLYCOL 4000 [Concomitant]
     Active Substance: POLYETHYLENE GLYCOL 4000
     Dosage: POWDER FOR ORAL SOLUTION IN SACHET-DOSE
  16. EMEND [Concomitant]
     Active Substance: APREPITANT
     Dosage: UNK
  17. ZYMAFLUOR [Concomitant]
     Active Substance: SODIUM FLUORIDE
     Dosage: UNK

REACTIONS (1)
  - Hyperglycaemia [Recovered/Resolved]
